FAERS Safety Report 5663404-5 (Version None)
Quarter: 2008Q1

REPORT INFORMATION
  Report Type: 
  Country: None (occurrence: None)
  Receive Date: 20080307
  Receipt Date: 20080222
  Transmission Date: 20080703
  Serious: Yes (Death, Life-Threatening, Hospitalization)
  Sender: FDA-Public Use
  Company Number: 2008P1000032

PATIENT
  Age: 46 Year
  Sex: Male

DRUGS (3)
  1. BUSULFAN (BUSULFAN) [Suspect]
     Indication: STEM CELL TRANSPLANT
     Dosage: 27 ML; 36 ML; 9 ML
     Dates: start: 20070624, end: 20070624
  2. BUSULFAN (BUSULFAN) [Suspect]
     Indication: STEM CELL TRANSPLANT
     Dosage: 27 ML; 36 ML; 9 ML
     Dates: start: 20070625, end: 20070625
  3. BUSULFAN (BUSULFAN) [Suspect]
     Indication: STEM CELL TRANSPLANT
     Dosage: 27 ML; 36 ML; 9 ML
     Dates: start: 20070626, end: 20070626

REACTIONS (8)
  - ACUTE GRAFT VERSUS HOST DISEASE [None]
  - ACUTE MYELOID LEUKAEMIA RECURRENT [None]
  - ANOREXIA [None]
  - CONVULSION [None]
  - DIARRHOEA [None]
  - NAUSEA [None]
  - STAPHYLOCOCCAL SEPSIS [None]
  - STOMATITIS [None]
